FAERS Safety Report 23087361 (Version 1)
Quarter: 2023Q4

REPORT INFORMATION
  Report Type: Spontaneous
  Country: RU (occurrence: RU)
  Receive Date: 20231020
  Receipt Date: 20231020
  Transmission Date: 20240110
  Serious: Yes (Death, Hospitalization)
  Sender: FDA-Public Use
  Company Number: RU-SANDOZ-SDZ2023RU039108

PATIENT
  Sex: Female
  Weight: 116 kg

DRUGS (1)
  1. METHOTREXATE [Suspect]
     Active Substance: METHOTREXATE
     Indication: Self-medication
     Dosage: 5 MG, BID
     Route: 048
     Dates: start: 202309, end: 20230918

REACTIONS (5)
  - Thrombocytopenia [Fatal]
  - Ulcer [Fatal]
  - Agranulocytosis [Fatal]
  - Multiple organ dysfunction syndrome [Fatal]
  - Ulcer haemorrhage [Fatal]

NARRATIVE: CASE EVENT DATE: 20230918
